FAERS Safety Report 6326808-3 (Version None)
Quarter: 2009Q3

REPORT INFORMATION
  Report Type: 
  Country: None (occurrence: None)
  Receive Date: 20090825
  Receipt Date: 20090821
  Transmission Date: 20100115
  Serious: Yes (Death)
  Sender: FDA-Public Use
  Company Number: RU-AVENTIS-200919146GDDC

PATIENT
  Age: 51 Year
  Sex: Female
  Weight: 90 kg

DRUGS (7)
  1. PLACEBO [Suspect]
     Indication: NON-SMALL CELL LUNG CANCER
     Route: 042
     Dates: start: 20090730, end: 20090730
  2. DOCETAXEL [Suspect]
     Indication: NON-SMALL CELL LUNG CANCER
     Route: 042
     Dates: start: 20090730, end: 20090730
  3. METOPROLOL [Concomitant]
     Dates: start: 20080101
  4. FELODIPINE [Concomitant]
     Dates: start: 20080101
  5. CORTICOSTEROID NOS [Concomitant]
  6. AMOXICILLIN AND CLAVULANATE POTASSIUM [Concomitant]
  7. PARACETAMOL [Concomitant]

REACTIONS (1)
  - MYOCARDIAL INFARCTION [None]
